FAERS Safety Report 21245847 (Version 1)
Quarter: 2022Q3

REPORT INFORMATION
  Report Type: Spontaneous
  Country: DE (occurrence: DE)
  Receive Date: 20220824
  Receipt Date: 20220824
  Transmission Date: 20221027
  Serious: Yes (Other)
  Sender: FDA-Public Use
  Company Number: None

PATIENT
  Age: 82 Year
  Sex: Female
  Weight: 72 kg

DRUGS (6)
  1. PREDNISOLONE [Interacting]
     Active Substance: PREDNISOLONE
     Indication: Rheumatic disorder
     Route: 065
     Dates: start: 202207
  2. ETANERCEPT [Interacting]
     Active Substance: ETANERCEPT
     Indication: Rheumatic disorder
     Dosage: BENEPALI 50 MG SOLUTION FOR INJECTION IN PRE-FILLED PEN
     Route: 065
     Dates: end: 202206
  3. AMITRIPTYLINE [Concomitant]
     Active Substance: AMITRIPTYLINE
     Indication: Depression
     Dosage: 1-0-0
     Route: 065
  4. AMITRIPTYLINE [Concomitant]
     Active Substance: AMITRIPTYLINE
     Indication: Pain
  5. RAMIPRIL [Concomitant]
     Active Substance: RAMIPRIL
     Indication: Hypertension
     Dosage: RAMILICH 5 MG TABLETS 1/2-0-1/2 PERMANENT MEDICATION
     Route: 065
  6. LERCANIDIPINE [Concomitant]
     Active Substance: LERCANIDIPINE
     Indication: Hypertension
     Dosage: 1-0-0 (PERMANENT MEDICATION)
     Route: 065

REACTIONS (17)
  - Glucocorticoid deficiency [Unknown]
  - Skin warm [Unknown]
  - Erythema [Unknown]
  - Loss of personal independence in daily activities [Unknown]
  - Arthralgia [Unknown]
  - Arthralgia [Unknown]
  - Asthenia [Unknown]
  - Muscular weakness [Unknown]
  - Visual impairment [Unknown]
  - Joint swelling [Unknown]
  - Pruritus [Unknown]
  - Asthenia [Unknown]
  - Joint swelling [Unknown]
  - Chills [Unknown]
  - Drug interaction [Unknown]
  - Eye irritation [Unknown]
  - Inappropriate schedule of product discontinuation [Unknown]

NARRATIVE: CASE EVENT DATE: 20220101
